FAERS Safety Report 17240494 (Version 1)
Quarter: 2020Q1

REPORT INFORMATION
  Report Type: Spontaneous
  Country: US (occurrence: US)
  Receive Date: 20200107
  Receipt Date: 20200107
  Transmission Date: 20200409
  Serious: No
  Sender: FDA-Public Use
  Company Number: US-ASTRAZENECA-2019SF80062

PATIENT
  Age: 17897 Day
  Sex: Male

DRUGS (1)
  1. BYDUREON BCISE [Suspect]
     Active Substance: EXENATIDE
     Indication: DIABETES MELLITUS
     Route: 065
     Dates: start: 20191202

REACTIONS (6)
  - Needle issue [Unknown]
  - Injection site pain [Unknown]
  - Incorrect dose administered by device [Unknown]
  - Wrong technique in device usage process [Unknown]
  - Device leakage [Unknown]
  - Device issue [Unknown]

NARRATIVE: CASE EVENT DATE: 20191202
